FAERS Safety Report 13464969 (Version 1)
Quarter: 2017Q2

REPORT INFORMATION
  Report Type: Spontaneous
  Country: IE (occurrence: IE)
  Receive Date: 20170420
  Receipt Date: 20170420
  Transmission Date: 20170830
  Serious: Yes (Other)
  Sender: FDA-Public Use
  Company Number: IE-MYLANLABS-2017M1024402

PATIENT

DRUGS (6)
  1. CLOZARIL [Suspect]
     Active Substance: CLOZAPINE
     Dosage: 50 MG, AM
     Route: 048
     Dates: start: 201704
  2. CLOZARIL [Suspect]
     Active Substance: CLOZAPINE
     Dosage: 75 MG, UNK
     Route: 048
     Dates: start: 20170405
  3. CLOZARIL [Suspect]
     Active Substance: CLOZAPINE
     Indication: SCHIZOPHRENIA
     Dosage: UNK
     Route: 048
     Dates: start: 20131004
  4. CLOZARIL [Suspect]
     Active Substance: CLOZAPINE
     Dosage: 175 MG, PM
     Route: 048
  5. CLOZARIL [Suspect]
     Active Substance: CLOZAPINE
     Dosage: 150 MG, PM
     Route: 048
     Dates: start: 201704
  6. CLOZARIL [Suspect]
     Active Substance: CLOZAPINE
     Dosage: 150 MG, PM
     Route: 048
     Dates: start: 20170329

REACTIONS (1)
  - Antipsychotic drug level increased [Not Recovered/Not Resolved]

NARRATIVE: CASE EVENT DATE: 20170319
